FAERS Safety Report 8554622-7 (Version None)
Quarter: 2012Q3

REPORT INFORMATION
  Report Type: 
  Country: None (occurrence: None)
  Receive Date: 20120731
  Receipt Date: 20120723
  Transmission Date: 20120928
  Serious: Yes (Hospitalization)
  Sender: FDA-Public Use
  Company Number: US-JNJFOC-20120713415

PATIENT
  Sex: Female
  Weight: 78.8 kg

DRUGS (4)
  1. PREDNISONE [Concomitant]
  2. NUVARING [Concomitant]
     Indication: CONTRACEPTION
  3. METHOTREXATE [Concomitant]
  4. REMICADE [Suspect]
     Indication: CROHN'S DISEASE
     Route: 042
     Dates: start: 20060306

REACTIONS (1)
  - ILEAL STENOSIS [None]
